FAERS Safety Report 9324958 (Version 2)
Quarter: 2013Q3

REPORT INFORMATION
  Report Type: Spontaneous
  Country: BR (occurrence: None)
  Receive Date: 20130530
  Receipt Date: 20130826
  Transmission Date: 20140515
  Serious: Yes (Hospitalization)
  Sender: FDA-Public Use
  Company Number: VAL_02533_2013

PATIENT
  Age: 44 Year
  Sex: Male
  Weight: 90.5 kg

DRUGS (2)
  1. METOPROLOL [Suspect]
     Indication: PRODUCT USED FOR UNKNOWN INDICATION
     Route: 048
     Dates: start: 201003
  2. ALISKIREN\ENALAPRIL [Suspect]
     Indication: CARDIAC FAILURE
     Dates: start: 20110621

REACTIONS (4)
  - Bradycardia [None]
  - Myocardial infarction [None]
  - Concomitant disease progression [None]
  - Coronary artery stenosis [None]
